FAERS Safety Report 13620021 (Version 1)
Quarter: 2017Q2

REPORT INFORMATION
  Report Type: Spontaneous
  Country: FR (occurrence: FR)
  Receive Date: 20170607
  Receipt Date: 20170607
  Transmission Date: 20170830
  Serious: Yes (Hospitalization)
  Sender: FDA-Public Use
  Company Number: FR-BAXTER-2017BAX022601

PATIENT
  Age: 70 Year
  Sex: Male

DRUGS (21)
  1. ENDOXAN 50 MG, COMPRIM? ENROB? [Suspect]
     Active Substance: CYCLOPHOSPHAMIDE
     Indication: CHRONIC LYMPHOCYTIC LEUKAEMIA
     Dosage: ONE CYCLE
     Route: 048
     Dates: start: 20170209, end: 20170211
  2. MABTHERA [Suspect]
     Active Substance: RITUXIMAB
     Dosage: CYCLE 4, LAST CYCLE
     Route: 065
     Dates: start: 20161230
  3. LEVACT [Suspect]
     Active Substance: BENDAMUSTINE HYDROCHLORIDE
     Dosage: CYCLE 2 AND CYCLE 3
     Route: 065
     Dates: start: 2016
  4. INSULINE [Concomitant]
     Active Substance: INSULIN NOS
     Indication: PRODUCT USED FOR UNKNOWN INDICATION
     Route: 065
  5. FLUDARA [Suspect]
     Active Substance: FLUDARABINE PHOSPHATE
     Indication: CHRONIC LYMPHOCYTIC LEUKAEMIA
     Dosage: ONE CYCLE
     Route: 048
     Dates: start: 20170209, end: 20170211
  6. METFORMINE [Concomitant]
     Active Substance: METFORMIN HYDROCHLORIDE
     Indication: PRODUCT USED FOR UNKNOWN INDICATION
     Route: 065
  7. MABTHERA [Suspect]
     Active Substance: RITUXIMAB
     Dosage: SINGLE INTAKE
     Route: 042
     Dates: start: 20170208, end: 20170208
  8. CLOPIDOGREL [Concomitant]
     Active Substance: CLOPIDOGREL BISULFATE
     Indication: PRODUCT USED FOR UNKNOWN INDICATION
     Route: 065
  9. LEVACT [Suspect]
     Active Substance: BENDAMUSTINE HYDROCHLORIDE
     Dosage: CYCLE 4, LAST CYCLE
     Route: 042
     Dates: start: 20161229
  10. LEVACT [Suspect]
     Active Substance: BENDAMUSTINE HYDROCHLORIDE
     Dosage: CYCLE 4, LAST CYCLE
     Route: 042
     Dates: start: 20161230
  11. VALACICLOVIR [Concomitant]
     Active Substance: VALACYCLOVIR HYDROCHLORIDE
     Indication: PRODUCT USED FOR UNKNOWN INDICATION
     Route: 065
  12. BACTRIM [Concomitant]
     Active Substance: SULFAMETHOXAZOLE\TRIMETHOPRIM
     Indication: PRODUCT USED FOR UNKNOWN INDICATION
     Route: 065
  13. CALCIUM FOLINATE [Concomitant]
     Active Substance: LEUCOVORIN CALCIUM
     Indication: PRODUCT USED FOR UNKNOWN INDICATION
     Route: 065
  14. PREDNISONE. [Concomitant]
     Active Substance: PREDNISONE
     Indication: PRODUCT USED FOR UNKNOWN INDICATION
     Route: 065
  15. MABTHERA [Suspect]
     Active Substance: RITUXIMAB
     Dosage: CYCLE 4, LAST CYCLE
     Route: 065
     Dates: start: 20161229
  16. MABTHERA [Suspect]
     Active Substance: RITUXIMAB
     Indication: CHRONIC LYMPHOCYTIC LEUKAEMIA
     Dosage: CYCLE 1
     Route: 065
     Dates: start: 20161007
  17. LEVACT [Suspect]
     Active Substance: BENDAMUSTINE HYDROCHLORIDE
     Indication: CHRONIC LYMPHOCYTIC LEUKAEMIA
     Dosage: CYCLE 1
     Route: 065
     Dates: start: 20161007
  18. RAMIPRIL. [Concomitant]
     Active Substance: RAMIPRIL
     Indication: PRODUCT USED FOR UNKNOWN INDICATION
     Route: 065
  19. ROSUVASTATINE [Concomitant]
     Active Substance: ROSUVASTATIN
     Indication: PRODUCT USED FOR UNKNOWN INDICATION
     Route: 065
  20. MABTHERA [Suspect]
     Active Substance: RITUXIMAB
     Dosage: CYCLE 2 AND CYCLE 3
     Route: 065
     Dates: start: 2016
  21. HYDROCHLOROTHIAZIDE. [Concomitant]
     Active Substance: HYDROCHLOROTHIAZIDE
     Indication: PRODUCT USED FOR UNKNOWN INDICATION
     Route: 065

REACTIONS (1)
  - Facial paralysis [Recovering/Resolving]

NARRATIVE: CASE EVENT DATE: 201705
